FAERS Safety Report 10380953 (Version 1)
Quarter: 2014Q1

REPORT INFORMATION
  Report Type: Spontaneous
  Country: US (occurrence: None)
  Receive Date: 20140306
  Receipt Date: 20140306
  Transmission Date: 20141002
  Serious: Yes (Other)
  Sender: FDA-Public Use
  Company Number: 163-21880-13020138

PATIENT
  Age: 68 Year
  Sex: Female
  Weight: 98.5 kg

DRUGS (6)
  1. REVLIMID (LENALIDOMIDE) (25 MILLIGRAM, CAPSULES) [Suspect]
     Indication: PLASMA CELL MYELOMA
     Dosage: 25 MG, 14 IN 21 D, PO
     Route: 048
     Dates: start: 20130107
  2. CREAM (OTHER THERAPEUTIC PRODUCTS) [Concomitant]
  3. DEXAMETHASONE [Concomitant]
  4. VITAMINS [Concomitant]
  5. STOOL SOFTENER (DOCUSATE SODIUM) [Concomitant]
  6. TRIAL VACCINE (VACCINES) [Concomitant]

REACTIONS (2)
  - Rash [None]
  - Pigmentation disorder [None]
